FAERS Safety Report 9801892 (Version 1)
Quarter: 2014Q1

REPORT INFORMATION
  Report Type: Spontaneous
  Country: GB (occurrence: GB)
  Receive Date: 20140107
  Receipt Date: 20140107
  Transmission Date: 20141002
  Serious: Yes (Disabling)
  Sender: FDA-Public Use
  Company Number: GB-WATSON-2013-23937

PATIENT
  Age: 67 Year
  Sex: Female

DRUGS (8)
  1. TEICOPLANIN [Suspect]
     Indication: PRODUCT USED FOR UNKNOWN INDICATION
     Dosage: 800 MG, UNKNOWN; STAT DOSE
     Route: 065
     Dates: start: 20111222, end: 20111222
  2. TEICOPLANIN [Suspect]
     Dosage: 400 MG, DAILY; TEICOPLANIN 800MG STAT THEN 400MG ONCE DAILY FOR 7/7
     Route: 042
     Dates: start: 20111223, end: 20111229
  3. CIPROFLOXACIN HYDROCHLORIDE (UNKNOWN) [Suspect]
     Indication: PRODUCT USED FOR UNKNOWN INDICATION
     Dosage: 400 MG, UNKNOWN; STAT DOSE
     Route: 065
     Dates: start: 20111222, end: 20111222
  4. CIPROFLOXACIN HYDROCHLORIDE (UNKNOWN) [Suspect]
     Dosage: 500 MG, BID; 400MG STAT THEN 500MG TWICE DAILY FOR 10 DAYS
     Route: 048
     Dates: start: 20111222
  5. OMEPRAZOLE (UNKNOWN) [Suspect]
     Indication: PRODUCT USED FOR UNKNOWN INDICATION
     Dosage: 10 MG, DAILY (OD)
     Route: 048
  6. TRIMETHOPRIM [Concomitant]
     Indication: PRODUCT USED FOR UNKNOWN INDICATION
     Dosage: 200 MG, BID; DURATION DAYS
     Route: 065
     Dates: start: 20111101
  7. GENTAMICIN [Concomitant]
     Indication: WOUND INFECTION
     Dosage: UNK; PATIENT RECEIVED 7 DAYS OF GENTAMICIN
     Route: 065
  8. CEFUROXIME [Concomitant]
     Indication: PRODUCT USED FOR UNKNOWN INDICATION
     Dosage: 1.5 G, UNKNOWN; STAT DOSE
     Route: 042
     Dates: start: 20111128, end: 20111128

REACTIONS (1)
  - Clostridium difficile infection [Recovered/Resolved]
